FAERS Safety Report 23724040 (Version 1)
Quarter: 2024Q2

REPORT INFORMATION
  Report Type: Report from Study
  Country: US (occurrence: US)
  Receive Date: 20240409
  Receipt Date: 20240409
  Transmission Date: 20240717
  Serious: No
  Sender: FDA-Public Use
  Company Number: US-ROCHE-3215496

PATIENT
  Age: 62 Year
  Sex: Female

DRUGS (1)
  1. GAVRETO [Suspect]
     Active Substance: PRALSETINIB
     Indication: Lung neoplasm malignant
     Dosage: TAKE 4 CAPSULES BY MOUTH EVERY DAY ON AN EMPTY STOMACH, NO FOOD INTAKE FOR 2 HOURS BEFORE AND AFTER
     Route: 048

REACTIONS (1)
  - Amnesia [Unknown]
